FAERS Safety Report 10557701 (Version 1)
Quarter: 2014Q4

REPORT INFORMATION
  Report Type: Spontaneous
  Country: US (occurrence: None)
  Receive Date: 20141030
  Receipt Date: 20141030
  Transmission Date: 20150529
  Serious: No
  Sender: FDA-Public Use
  Company Number: None

PATIENT
  Age: 60 Year
  Sex: Male

DRUGS (1)
  1. CAPECITABINE 500 MG TAB TEVA PHARMACEUTICALS [Suspect]
     Active Substance: CAPECITABINE
     Indication: PANCREATIC CARCINOMA
     Dosage: 14 OFF 14
     Route: 048
     Dates: start: 20140815, end: 20141014

REACTIONS (2)
  - Pancreatic carcinoma [None]
  - Malignant neoplasm progression [None]

NARRATIVE: CASE EVENT DATE: 20141014
